FAERS Safety Report 7172656-4 (Version None)
Quarter: 2010Q4

REPORT INFORMATION
  Report Type: 
  Country: None (occurrence: None)
  Receive Date: 20101217
  Receipt Date: 20100211
  Transmission Date: 20110411
  Serious: No
  Sender: FDA-Public Use
  Company Number: US-AMGEN-KDL389677

PATIENT

DRUGS (7)
  1. ENBREL [Suspect]
     Indication: RHEUMATOID ARTHRITIS
     Dosage: 50 MG, QWK
     Route: 058
     Dates: start: 20071220
  2. ENBREL [Suspect]
     Indication: CONNECTIVE TISSUE DISORDER
  3. METHOTREXATE [Concomitant]
     Dosage: 2.5 MG, QWK
     Route: 048
  4. HYDROXYCHLOROQUINE SULFATE [Concomitant]
     Dosage: 200 MG, BID
  5. PREDNISONE [Concomitant]
  6. RANITIDINE HYDROCHLORIDE [Concomitant]
  7. SULINDAC [Concomitant]

REACTIONS (1)
  - TENDON RUPTURE [None]
